FAERS Safety Report 9513376 (Version 1)
Quarter: 2013Q1

REPORT INFORMATION
  Report Type: Spontaneous
  Country: US (occurrence: None)
  Receive Date: 20130305
  Receipt Date: 20130305
  Transmission Date: 20140127
  Serious: Yes (Hospitalization, Other)
  Sender: FDA-Public Use
  Company Number: 163-21880-12080617

PATIENT
  Age: 74 Year
  Sex: Female

DRUGS (1)
  1. REVLIMID (LENALIDOMIDE) (CAPSULES) [Suspect]
     Indication: PLASMA CELL MYELOMA
     Route: 048
     Dates: start: 201102

REACTIONS (8)
  - Dyspnoea [None]
  - Epistaxis [None]
  - Local swelling [None]
  - Hypersensitivity [None]
  - Throat irritation [None]
  - Gout [None]
  - Muscle spasms [None]
  - Cough [None]
